FAERS Safety Report 16407746 (Version 4)
Quarter: 2019Q2

REPORT INFORMATION
  Report Type: Spontaneous
  Country: PL (occurrence: PL)
  Receive Date: 20190609
  Receipt Date: 20190621
  Transmission Date: 20190711
  Serious: Yes (Other)
  Sender: FDA-Public Use
  Company Number: PL-CELLTRION INC.-2019PL021745

PATIENT

DRUGS (16)
  1. RITUXIMAB (UNKNOWN) [Suspect]
     Active Substance: RITUXIMAB
     Dosage: UNK
     Route: 065
  2. BENDAMUSTINE [Concomitant]
     Active Substance: BENDAMUSTINE
     Indication: CHRONIC LYMPHOCYTIC LEUKAEMIA
     Dosage: UNK
     Route: 065
  3. BENDAMUSTINE [Concomitant]
     Active Substance: BENDAMUSTINE
     Dosage: MONOTHERAPY
     Route: 065
     Dates: start: 201705, end: 201710
  4. VINCRISTINE [Suspect]
     Active Substance: VINCRISTINE
     Indication: CHRONIC LYMPHOCYTIC LEUKAEMIA
     Dosage: R-CHOP (3-CYCLES)
     Route: 065
     Dates: start: 201803, end: 201806
  5. ENDOXAN [CYCLOPHOSPHAMIDE MONOHYDRATE] [Suspect]
     Active Substance: CYCLOPHOSPHAMIDE
     Dosage: R-FC CHEMOTHERAPY
     Route: 065
     Dates: start: 201301
  6. FLUDARABINE [Concomitant]
     Active Substance: FLUDARABINE PHOSPHATE
     Indication: CHRONIC LYMPHOCYTIC LEUKAEMIA
     Dosage: UNK
  7. RITUXIMAB (UNKNOWN) [Suspect]
     Active Substance: RITUXIMAB
     Dosage: WITH BENDAMUSTINE
     Route: 065
     Dates: start: 201511
  8. ENDOXAN [CYCLOPHOSPHAMIDE MONOHYDRATE] [Suspect]
     Active Substance: CYCLOPHOSPHAMIDE
     Indication: CHRONIC LYMPHOCYTIC LEUKAEMIA
     Dosage: R-CHOP (3-CYCLES)
     Route: 065
     Dates: start: 201803, end: 201806
  9. RITUXIMAB (UNKNOWN) [Suspect]
     Active Substance: RITUXIMAB
     Indication: CHRONIC LYMPHOCYTIC LEUKAEMIA
     Dosage: R-CHOP (3-CYCLES)
     Route: 065
     Dates: start: 201803, end: 201806
  10. BENDAMUSTINE [Concomitant]
     Active Substance: BENDAMUSTINE
     Dosage: WITH RITUXIMAB
     Route: 065
     Dates: start: 201511
  11. RITUXIMAB (UNKNOWN) [Suspect]
     Active Substance: RITUXIMAB
     Dosage: R-FC CHEMOTHERAPY
     Route: 065
     Dates: start: 201301
  12. ENDOXAN [CYCLOPHOSPHAMIDE MONOHYDRATE] [Suspect]
     Active Substance: CYCLOPHOSPHAMIDE
     Dosage: FC CHEMOTHERAPY
     Route: 065
     Dates: start: 201201
  13. DOXORUBICIN [Suspect]
     Active Substance: DOXORUBICIN
     Indication: CHRONIC LYMPHOCYTIC LEUKAEMIA
     Dosage: R-CHOP (3 CYCLES)
     Route: 065
     Dates: start: 201803, end: 201806
  14. FLUDARABINE [Concomitant]
     Active Substance: FLUDARABINE PHOSPHATE
     Dosage: FC CHEMOTHERAPY
     Route: 065
     Dates: start: 201201
  15. PREDNISONE. [Suspect]
     Active Substance: PREDNISONE
     Indication: CHRONIC LYMPHOCYTIC LEUKAEMIA
     Dosage: R-CHOP (3-CYCLES)
     Route: 065
     Dates: start: 201803, end: 201806
  16. FLUDARABINE [Concomitant]
     Active Substance: FLUDARABINE PHOSPHATE
     Dosage: R-FC CHEMOTHERAPY
     Route: 065
     Dates: start: 201301

REACTIONS (11)
  - Pruritus [Unknown]
  - Erythema [Unknown]
  - Leukaemia cutis [Unknown]
  - Chronic lymphocytic leukaemia [Unknown]
  - Skin lesion [Unknown]
  - Nodule [Unknown]
  - Therapy partial responder [Unknown]
  - Drug resistance [Unknown]
  - Product use in unapproved indication [Unknown]
  - Skin erosion [Unknown]
  - Rash papular [Unknown]
